FAERS Safety Report 8521408 (Version 7)
Quarter: 2012Q4

REPORT INFORMATION
  Report Type: 
  Country: CA (occurrence: CA)
  Receive Date: 20120419
  Receipt Date: 20121129
  Transmission Date: 20130627
  Serious: Yes (Hospitalization, Other)
  Sender: FDA-Public Use
  Company Number: PHHY2012CA031675

PATIENT
  Age: 67 Year
  Sex: Male

DRUGS (18)
  1. EXJADE [Suspect]
     Indication: MYELODYSPLASTIC SYNDROME
     Dosage: 2000 mg, UNK
     Route: 048
     Dates: start: 2009, end: 201110
  2. EXJADE [Interacting]
     Dosage: 1500 mg, UNK
     Route: 048
     Dates: end: 20121020
  3. CICLOSPORIN [Interacting]
     Dosage: 250 UKN, BID
  4. BIAXIN [Interacting]
  5. SEPTRA [Concomitant]
  6. CEFTRIAXONE [Concomitant]
  7. AZITHROMYCIN [Concomitant]
  8. LEVOFLOXACIN [Concomitant]
  9. AMOXICILINA + CLAVULANICO [Concomitant]
  10. INSULIN [Concomitant]
  11. MIRAPEX [Concomitant]
  12. NYSTATIN [Concomitant]
  13. ASA [Concomitant]
     Dosage: 81 mg, QD
     Route: 048
  14. FRAGMIN [Concomitant]
  15. NEUPOGEN [Concomitant]
  16. NOVOMIX [Concomitant]
  17. CRESTOR [Concomitant]
  18. ZOPICLONE [Concomitant]

REACTIONS (9)
  - Sepsis [Unknown]
  - Pneumonia [Unknown]
  - Blood iron increased [Unknown]
  - Renal failure [Not Recovered/Not Resolved]
  - Blood creatinine increased [Unknown]
  - Blood urea increased [Unknown]
  - Malaise [Unknown]
  - Drug interaction [Unknown]
  - Serum ferritin decreased [Unknown]
